FAERS Safety Report 9447226 (Version 1)
Quarter: 2013Q3

REPORT INFORMATION
  Report Type: Spontaneous
  Country: BR (occurrence: BR)
  Receive Date: 20130807
  Receipt Date: 20130807
  Transmission Date: 20140515
  Serious: Yes (Other)
  Sender: FDA-Public Use
  Company Number: BR-ELI_LILLY_AND_COMPANY-BR201307010859

PATIENT
  Age: 85 Year
  Sex: Female

DRUGS (1)
  1. FORTEO [Suspect]
     Indication: OSTEOPOROSIS
     Dosage: 20 UG, QD
     Route: 058
     Dates: start: 20130621, end: 20130729

REACTIONS (6)
  - Shock [Recovered/Resolved]
  - Neoplasm malignant [Unknown]
  - Renal disorder [Recovered/Resolved]
  - Dysuria [Recovered/Resolved]
  - Dizziness [Recovered/Resolved]
  - Injection site discolouration [Recovered/Resolved]
